FAERS Safety Report 25927099 (Version 1)
Quarter: 2025Q4

REPORT INFORMATION
  Report Type: Spontaneous
  Country: EU (occurrence: EU)
  Receive Date: 20251015
  Receipt Date: 20251015
  Transmission Date: 20260118
  Serious: Yes (Life-Threatening)
  Sender: PURDUE
  Company Number: EU-BAUSCH-BH-2025-017963

PATIENT
  Sex: Female

DRUGS (17)
  1. MORPHINE SULFATE [Suspect]
     Active Substance: MORPHINE SULFATE
     Indication: Septic shock
     Dosage: 0.1 MILLIGRAM, Q6H
     Route: 042
  2. MORPHINE SULFATE [Suspect]
     Active Substance: MORPHINE SULFATE
     Indication: Septic shock
     Dosage: 0.1 MILLIGRAM, Q6H
     Route: 042
  3. ACYCLOVIR [Suspect]
     Active Substance: ACYCLOVIR
     Indication: Septic shock
     Dosage: 40 MILLIGRAM, Q8H
     Route: 042
  4. HYDROCORTISONE [Suspect]
     Active Substance: HYDROCORTISONE
     Indication: Septic shock
     Dosage: 2 MILLIGRAM/KILOGRAM, Q8H
     Route: 042
  5. VANCOMYCIN [Suspect]
     Active Substance: VANCOMYCIN
     Indication: Septic shock
     Dosage: 30 MILLIGRAM, Q8H
     Route: 042
  6. MEROPENEM [Suspect]
     Active Substance: MEROPENEM
     Indication: Septic shock
     Dosage: 80 MILLIGRAM, Q8H
     Route: 042
  7. AMIKACIN [Suspect]
     Active Substance: AMIKACIN
     Indication: Septic shock
     Dosage: 25 MILLIGRAM, Q24H
     Route: 042
  8. FLUCONAZOLE [Suspect]
     Active Substance: FLUCONAZOLE
     Indication: Septic shock
     Dosage: 12 MILLIGRAM, Q24H
     Route: 042
  9. DOPAMINE [Suspect]
     Active Substance: DOPAMINE HYDROCHLORIDE
     Indication: Septic shock
     Dosage: UNK
     Route: 065
  10. NOREPINEPHRINE [Suspect]
     Active Substance: NOREPINEPHRINE
     Indication: Septic shock
     Dosage: UNK
     Route: 065
  11. ACETAMINOPHEN [Suspect]
     Active Substance: ACETAMINOPHEN
     Indication: Septic shock
     Dosage: 25 MILLIGRAM, Q6H
     Route: 042
  12. PHENOBARBITAL [Suspect]
     Active Substance: PHENOBARBITAL
     Indication: Septic shock
     Dosage: 6 MILLIGRAM, Q12H
     Route: 042
  13. KETAMINE [Suspect]
     Active Substance: KETAMINE
     Indication: Septic shock
     Dosage: UNK
     Route: 042
  14. ALBUMIN HUMAN [Suspect]
     Active Substance: ALBUMIN HUMAN
     Indication: Septic shock
     Dosage: 10 MILLILITER
     Route: 042
  15. IMMUNE GLOBULIN NOS [Suspect]
     Active Substance: IMMUNE GLOBULIN NOS
     Indication: Septic shock
     Dosage: 2.5 GRAM
     Route: 042
  16. NOREPINEPHRINE BITARTRATE [Suspect]
     Active Substance: NOREPINEPHRINE BITARTRATE
     Indication: Septic shock
     Dosage: UNK
     Route: 065
  17. MANNITOL [Suspect]
     Active Substance: MANNITOL
     Indication: Septic shock
     Dosage: 1 GRAM, Q6H
     Route: 065

REACTIONS (1)
  - Therapy non-responder [Unknown]
